FAERS Safety Report 17464672 (Version 1)
Quarter: 2020Q1

REPORT INFORMATION
  Report Type: Spontaneous
  Country: TR (occurrence: TR)
  Receive Date: 20200226
  Receipt Date: 20200226
  Transmission Date: 20200409
  Serious: Yes (Other)
  Sender: FDA-Public Use
  Company Number: TR-PFM-2020-02189

PATIENT

DRUGS (1)
  1. VINORELBINE [Suspect]
     Active Substance: VINORELBINE TARTRATE
     Indication: LUNG NEOPLASM MALIGNANT
     Dosage: CYCLICAL
     Route: 041

REACTIONS (3)
  - Pyoderma gangrenosum [Recovered/Resolved with Sequelae]
  - Metaplasia [Recovered/Resolved with Sequelae]
  - Infusion site reaction [Recovered/Resolved with Sequelae]
